FAERS Safety Report 12711787 (Version 2)
Quarter: 2016Q3

REPORT INFORMATION
  Report Type: Spontaneous
  Country: US (occurrence: US)
  Receive Date: 20160902
  Receipt Date: 20160902
  Transmission Date: 20161109
  Serious: No
  Sender: FDA-Public Use
  Company Number: US-AMARIN PHARMA, INC.-2016AMR000032

PATIENT
  Age: 67 Year
  Sex: Male
  Weight: 93.98 kg

DRUGS (2)
  1. VASCEPA [Suspect]
     Active Substance: ICOSAPENT ETHYL
     Indication: BLOOD TRIGLYCERIDES INCREASED
     Route: 065
     Dates: start: 201508, end: 20160225
  2. VASCEPA [Suspect]
     Active Substance: ICOSAPENT ETHYL
     Route: 065
     Dates: start: 20160225

REACTIONS (1)
  - Blood triglycerides increased [Not Recovered/Not Resolved]
